FAERS Safety Report 25168665 (Version 1)
Quarter: 2025Q2

REPORT INFORMATION
  Report Type: Spontaneous
  Country: US (occurrence: US)
  Receive Date: 20250407
  Receipt Date: 20250407
  Transmission Date: 20250716
  Serious: No
  Sender: INTRA-CELLULAR THERAPIES
  Company Number: US-INTRA-CELLULAR THERAPIES, INC.-2025ICT00218

PATIENT
  Age: 7 Decade
  Sex: Male

DRUGS (3)
  1. CAPLYTA [Suspect]
     Active Substance: LUMATEPERONE
     Indication: Bipolar disorder
  2. CAPLYTA [Suspect]
     Active Substance: LUMATEPERONE
  3. CAPLYTA [Suspect]
     Active Substance: LUMATEPERONE

REACTIONS (2)
  - Irritability [Recovering/Resolving]
  - Akathisia [Recovering/Resolving]
